FAERS Safety Report 7365258-8 (Version None)
Quarter: 2011Q1

REPORT INFORMATION
  Report Type: 
  Country: None (occurrence: None)
  Receive Date: 20110322
  Receipt Date: 20110314
  Transmission Date: 20110831
  Serious: Yes (Hospitalization)
  Sender: FDA-Public Use
  Company Number: US-BIOGENIDEC-2011BI009523

PATIENT
  Age: 69 Year
  Sex: Male
  Weight: 52 kg

DRUGS (7)
  1. FLUOXETINE [Concomitant]
     Indication: DEPRESSION
     Route: 048
  2. ALPRAZOLAM [Concomitant]
  3. TYSABRI [Suspect]
     Indication: MULTIPLE SCLEROSIS
     Route: 042
     Dates: start: 20110216
  4. CLONAZEPAM [Concomitant]
     Indication: INSOMNIA
  5. MEDICATION (NOS) [Concomitant]
     Indication: DIARRHOEA
  6. HYDROCHLOROTHIAZIDE [Concomitant]
     Indication: HYPERTENSION
  7. DETROL LA [Concomitant]
     Indication: URINARY TRACT DISORDER
     Route: 048

REACTIONS (4)
  - CEREBROVASCULAR ACCIDENT [None]
  - HEADACHE [None]
  - FATIGUE [None]
  - ABASIA [None]
